FAERS Safety Report 16997904 (Version 1)
Quarter: 2019Q4

REPORT INFORMATION
  Report Type: Spontaneous
  Country: GB (occurrence: GB)
  Receive Date: 20191106
  Receipt Date: 20191106
  Transmission Date: 20200122
  Serious: Yes (Other)
  Sender: FDA-Public Use
  Company Number: GB-TEVA-2019-GB-1131103

PATIENT
  Age: 71 Year
  Sex: Male
  Weight: 90 kg

DRUGS (10)
  1. VARDENAFIL [Concomitant]
     Active Substance: VARDENAFIL HYDROCHLORIDE
     Dosage: USE AS DIRECTED
     Dates: start: 20190816, end: 20190913
  2. FELODIPINE. [Concomitant]
     Active Substance: FELODIPINE
     Dosage: 1 DF, 1 DAY
     Dates: start: 20190625
  3. SALBUTAMOL [Concomitant]
     Active Substance: ALBUTEROL
     Dosage: 2 DF; PUFFS, UP TO 4 TIMES A DAY
     Route: 055
     Dates: start: 20190226
  4. TADALAFIL. [Concomitant]
     Active Substance: TADALAFIL
     Dosage: 1 DF, 1 DAY
     Dates: start: 20190226
  5. COCODAMOL [Concomitant]
     Active Substance: ACETAMINOPHEN\CODEINE PHOSPHATE
     Dosage: TAKE ONE OR TWO EVERY 4-6 HOURS WHEN REQUIRED
     Dates: start: 20190226
  6. LOSARTAN. [Suspect]
     Active Substance: LOSARTAN
     Dosage: 25 MG
     Route: 065
     Dates: start: 20190625
  7. OMEPRAZOLE. [Concomitant]
     Active Substance: OMEPRAZOLE
     Dosage: TAKE IN MORNING; 1 DF, 1 DAY
     Dates: start: 20190226
  8. ATORVASTATIN [Concomitant]
     Active Substance: ATORVASTATIN
     Dosage: 1 DF, 1 DAY
     Dates: start: 20190528
  9. FOSTAIR [Concomitant]
     Active Substance: BECLOMETHASONE\FORMOTEROL
     Dosage: 4 DF, 1 DAY; PUFFS
     Dates: start: 20190510
  10. MOVELAT [Concomitant]
     Dosage: 3 DF,  1DAY; APPLY
     Dates: start: 20190226

REACTIONS (2)
  - Cough [Unknown]
  - Muscle spasms [Recovered/Resolved]

NARRATIVE: CASE EVENT DATE: 20190913
